FAERS Safety Report 14822956 (Version 4)
Quarter: 2018Q2

REPORT INFORMATION
  Report Type: Spontaneous
  Country: DE (occurrence: DE)
  Receive Date: 20180427
  Receipt Date: 20180509
  Transmission Date: 20180711
  Serious: Yes (Hospitalization)
  Sender: FDA-Public Use
  Company Number: DE-PFIZER INC-2018173097

PATIENT
  Age: 74 Year
  Sex: Male

DRUGS (8)
  1. ACETYLSALICYLSAEURE [Concomitant]
     Active Substance: ASPIRIN
     Dosage: UNK
  2. MOXONIDINE [Suspect]
     Active Substance: MOXONIDINE
     Dosage: 0.3 MG, DAILY
     Route: 065
  3. RAMIPRIL. [Suspect]
     Active Substance: RAMIPRIL
     Dosage: 0.5 DF, 2X/DAY
     Route: 048
  4. NIFEDIPINE. [Concomitant]
     Active Substance: NIFEDIPINE
     Dosage: UNK
  5. METOPROLOL. [Suspect]
     Active Substance: METOPROLOL
     Dosage: 5 MG, 2X/DAY
     Route: 048
  6. TORASEMID [Suspect]
     Active Substance: TORSEMIDE
     Dosage: 10 MG, 2X/DAY
     Route: 065
  7. ALLOPURINOL. [Concomitant]
     Active Substance: ALLOPURINOL
     Dosage: UNK
  8. XIPAMIDE [Suspect]
     Active Substance: XIPAMIDE
     Dosage: 20 MG, DAILY
     Route: 065

REACTIONS (2)
  - Dizziness [Unknown]
  - Balance disorder [Unknown]
